FAERS Safety Report 16015275 (Version 2)
Quarter: 2019Q1

REPORT INFORMATION
  Report Type: Spontaneous
  Country: TR (occurrence: TR)
  Receive Date: 20190228
  Receipt Date: 20190321
  Transmission Date: 20190418
  Serious: Yes (Hospitalization, Other)
  Sender: FDA-Public Use
  Company Number: TR-009507513-1902TUR009574

PATIENT
  Age: 71 Year
  Sex: Female
  Weight: 85 kg

DRUGS (5)
  1. NACOSEL [Concomitant]
     Dosage: 3X1
     Route: 042
  2. CALBICOR [Concomitant]
     Dosage: STRENGTH:12.5 (UNITS UNKNOWN), 1X1
     Route: 048
  3. INVANZ [Suspect]
     Active Substance: ERTAPENEM SODIUM
     Indication: UROSEPSIS
     Dosage: 1 GRAM, 1X1
     Route: 042
     Dates: start: 20190214, end: 20190220
  4. ATERVIX [Concomitant]
     Dosage: 1X1
     Route: 048
  5. PROTONEX [Concomitant]
     Dosage: 1X1
     Route: 048

REACTIONS (3)
  - Loss of consciousness [Recovered/Resolved]
  - Somnolence [Recovering/Resolving]
  - Syncope [Recovered/Resolved]

NARRATIVE: CASE EVENT DATE: 20190215
